FAERS Safety Report 22216449 (Version 1)
Quarter: 2023Q2

REPORT INFORMATION
  Report Type: Spontaneous
  Country: US (occurrence: US)
  Receive Date: 20230417
  Receipt Date: 20230417
  Transmission Date: 20230722
  Serious: No
  Sender: FDA-Public Use
  Company Number: US-SA-SAC20230413001185

PATIENT
  Sex: Female

DRUGS (1)
  1. DUPIXENT [Suspect]
     Active Substance: DUPILUMAB
     Indication: Eczema
     Dosage: 300MG , OTHER
     Route: 058

REACTIONS (4)
  - Constipation [Unknown]
  - Erythema [Unknown]
  - Injection site erythema [Recovered/Resolved]
  - Eczema [Unknown]
